FAERS Safety Report 6823360-0 (Version None)
Quarter: 2010Q3

REPORT INFORMATION
  Report Type: 
  Country: None (occurrence: None)
  Receive Date: 20100708
  Receipt Date: 20100630
  Transmission Date: 20110219
  Serious: Yes (Life-Threatening, Hospitalization)
  Sender: FDA-Public Use
  Company Number: FR-WYE-G05285010

PATIENT
  Sex: Female

DRUGS (6)
  1. EFFEXOR XR [Suspect]
     Indication: BIPOLAR I DISORDER
     Route: 048
     Dates: start: 20060101, end: 20091201
  2. EFFEXOR XR [Suspect]
     Route: 048
     Dates: start: 20091201
  3. RIVOTRIL [Concomitant]
     Indication: BIPOLAR I DISORDER
     Dosage: UNKNOWN
     Route: 048
  4. TERALITHE [Suspect]
     Indication: BIPOLAR I DISORDER
     Route: 048
     Dates: start: 20070101
  5. ABILIFY [Suspect]
     Indication: BIPOLAR I DISORDER
     Route: 048
     Dates: start: 20090601, end: 20091201
  6. ABILIFY [Suspect]
     Route: 048
     Dates: start: 20091201

REACTIONS (1)
  - SYSTEMIC LUPUS ERYTHEMATOSUS [None]
